FAERS Safety Report 12367927 (Version 1)
Quarter: 2016Q2

REPORT INFORMATION
  Report Type: Spontaneous
  Country: US (occurrence: US)
  Receive Date: 20160513
  Receipt Date: 20160513
  Transmission Date: 20160815
  Serious: Yes (Other)
  Sender: FDA-Public Use
  Company Number: US-LUNDBECK-DKLU2013610

PATIENT
  Age: 64 Year
  Sex: Female

DRUGS (7)
  1. NORTHERA [Interacting]
     Active Substance: DROXIDOPA
     Route: 065
     Dates: start: 20160506
  2. NORTHERA [Interacting]
     Active Substance: DROXIDOPA
     Route: 065
  3. FLUDROCORTISONE [Concomitant]
     Active Substance: FLUDROCORTISONE
     Indication: PRODUCT USED FOR UNKNOWN INDICATION
     Route: 065
  4. NORTHERA [Interacting]
     Active Substance: DROXIDOPA
     Route: 065
     Dates: start: 20160506
  5. PARKINSONS MEDICATIONS [Interacting]
     Active Substance: UNSPECIFIED INGREDIENT
     Indication: PARKINSON^S DISEASE
     Route: 065
  6. FLUDROCORTISONE [Concomitant]
     Active Substance: FLUDROCORTISONE
     Route: 065
     Dates: start: 20160506
  7. NORTHERA [Suspect]
     Active Substance: DROXIDOPA
     Indication: BLOOD PRESSURE MANAGEMENT
     Route: 065

REACTIONS (7)
  - Drug interaction [Unknown]
  - Dizziness [Unknown]
  - Parkinson^s disease [Unknown]
  - Intentional underdose [Unknown]
  - Headache [Unknown]
  - Condition aggravated [Unknown]
  - Malaise [Unknown]

NARRATIVE: CASE EVENT DATE: 20160506
